FAERS Safety Report 4986860-4 (Version None)
Quarter: 2006Q2

REPORT INFORMATION
  Report Type: 
  Country: None (occurrence: None)
  Receive Date: 20060428
  Receipt Date: 20060306
  Transmission Date: 20061013
  Serious: Yes (Hospitalization)
  Sender: FDA-Public Use
  Company Number: DE-ABBOTT-06P-062-0327390-00

PATIENT
  Sex: Female
  Weight: 51 kg

DRUGS (8)
  1. ZEMPLAR [Suspect]
     Indication: HYPERPARATHYROIDISM SECONDARY
     Route: 042
     Dates: start: 20051010, end: 20051025
  2. ZEMPLAR [Suspect]
     Route: 042
     Dates: start: 20051025, end: 20051029
  3. ZEMPLAR [Suspect]
     Route: 042
     Dates: start: 20051128, end: 20051212
  4. ZEMPLAR [Suspect]
     Route: 042
     Dates: start: 20051212, end: 20051226
  5. ZEMPLAR [Suspect]
     Route: 042
     Dates: start: 20051226, end: 20060109
  6. CALCIUM ACETATE [Concomitant]
     Indication: HYPERPARATHYROIDISM SECONDARY
     Route: 048
  7. ALUMINIUM HYDROXIDE GEL [Concomitant]
     Indication: HYPERPARATHYROIDISM SECONDARY
     Route: 048
  8. COLECALCIFEROL [Concomitant]
     Indication: HYPERPARATHYROIDISM SECONDARY
     Route: 048

REACTIONS (2)
  - FALL [None]
  - HYPERCALCAEMIA [None]
